FAERS Safety Report 16170786 (Version 1)
Quarter: 2019Q2

REPORT INFORMATION
  Report Type: Report from Study
  Country: ES (occurrence: ES)
  Receive Date: 20190408
  Receipt Date: 20190408
  Transmission Date: 20190711
  Serious: Yes (Hospitalization, Other)
  Sender: FDA-Public Use
  Company Number: ES-MYLANLABS-2019M1031471

PATIENT
  Age: 83 Year
  Sex: Female

DRUGS (12)
  1. UNIKET [Concomitant]
     Active Substance: ISOSORBIDE MONONITRATE
     Dosage: 1-0-1
     Route: 048
  2. CLOPIDOGREL [Suspect]
     Active Substance: CLOPIDOGREL BISULFATE
     Indication: ACUTE MYOCARDIAL INFARCTION
     Dosage: 0-1-0
     Route: 048
     Dates: start: 201611
  3. PARACETAMOL [Concomitant]
     Active Substance: ACETAMINOPHEN
     Dosage: 1-1-1
  4. EUTIROX [Concomitant]
     Active Substance: LEVOTHYROXINE SODIUM
     Dosage: 1-0-0
     Route: 048
  5. RISPERDAL [Concomitant]
     Active Substance: RISPERIDONE
     Dosage: 1-1-0
     Route: 048
  6. OMEPRAZOL                          /00661201/ [Concomitant]
     Active Substance: OMEPRAZOLE
     Dosage: 1-0-0
     Route: 048
  7. RISPERDAL [Concomitant]
     Active Substance: RISPERIDONE
     Dosage: 0-0-1
     Route: 048
  8. ADIRO [Suspect]
     Active Substance: ASPIRIN
     Indication: ACUTE MYOCARDIAL INFARCTION
     Dosage: 0-1-0
     Route: 048
     Dates: start: 201611
  9. ORFIDAL [Concomitant]
     Active Substance: LORAZEPAM
     Dosage: 1-1-1
     Route: 048
  10. FUROSEMIDE. [Suspect]
     Active Substance: FUROSEMIDE
     Indication: CARDIAC FAILURE
     Dosage: 1-1-1
     Route: 048
     Dates: start: 2017
  11. ESPIRONOLACTONA [Suspect]
     Active Substance: SPIRONOLACTONE
     Indication: CARDIAC FAILURE
     Dosage: 0-1-0
     Route: 048
     Dates: start: 20170801, end: 20171113
  12. AKINETON [Concomitant]
     Active Substance: BIPERIDEN HYDROCHLORIDE
     Dosage: 1-0-1
     Route: 048

REACTIONS (1)
  - Acute kidney injury [Recovered/Resolved]

NARRATIVE: CASE EVENT DATE: 201711
